FAERS Safety Report 4298011-2 (Version None)
Quarter: 2004Q1

REPORT INFORMATION
  Report Type: 
  Country: None (occurrence: None)
  Receive Date: 20040218
  Receipt Date: 20011023
  Transmission Date: 20041129
  Serious: Yes (Other)
  Sender: FDA-Public Use
  Company Number: US-BRISTOL-MYERS SQUIBB COMPANY-11053105

PATIENT
  Age: 21 Year
  Sex: Female

DRUGS (20)
  1. STADOL [Suspect]
     Indication: MIGRAINE
     Route: 045
     Dates: start: 19930101
  2. STADOL [Suspect]
     Indication: MIGRAINE
     Dates: start: 19930101
  3. MARIJUANA [Concomitant]
  4. OXYCODONE HCL + ACETAMINOPHEN [Concomitant]
     Route: 048
  5. DIAZEPAM [Concomitant]
     Route: 048
  6. HYDROCODONE + ACETAMINOPHEN [Concomitant]
     Route: 048
  7. AMBIEN [Concomitant]
     Route: 048
  8. ALPRAZOLAM [Concomitant]
     Route: 048
  9. TYLENOL W/ CODEINE [Concomitant]
  10. LORCET-HD [Concomitant]
  11. DEMEROL [Concomitant]
  12. TEMAZEPAM [Concomitant]
  13. TOPROL-XL [Concomitant]
  14. DEPAKOTE [Concomitant]
  15. SINGULAIR [Concomitant]
  16. PAXIL [Concomitant]
  17. AMITRIPTYLINE [Concomitant]
  18. PROZAC [Concomitant]
  19. VISTARIL [Concomitant]
  20. PHENERGAN [Concomitant]

REACTIONS (6)
  - ASTHMA [None]
  - DEPENDENCE [None]
  - DRUG ADDICT [None]
  - DRUG EXPOSURE DURING PREGNANCY [None]
  - OVERDOSE [None]
  - SINUS TACHYCARDIA [None]
